FAERS Safety Report 6670917-6 (Version None)
Quarter: 2010Q2

REPORT INFORMATION
  Report Type: 
  Country: None (occurrence: None)
  Receive Date: 20100407
  Receipt Date: 20100330
  Transmission Date: 20101027
  Serious: Yes (Death, Disabling)
  Sender: FDA-Public Use
  Company Number: JP-BAYER-201010070BYL

PATIENT
  Age: 84 Year
  Sex: Male

DRUGS (1)
  1. NEXAVAR [Suspect]
     Indication: HEPATIC NEOPLASM MALIGNANT
     Dosage: AS USED: 400 MG  UNIT DOSE: 200 MG
     Route: 048
     Dates: start: 20090630, end: 20090721

REACTIONS (6)
  - COUGH [None]
  - DECREASED APPETITE [None]
  - HEPATIC FUNCTION ABNORMAL [None]
  - HEPATIC NEOPLASM MALIGNANT [None]
  - JAUNDICE [None]
  - OEDEMA PERIPHERAL [None]
